FAERS Safety Report 17301028 (Version 1)
Quarter: 2020Q1

REPORT INFORMATION
  Report Type: Spontaneous
  Country: US (occurrence: US)
  Receive Date: 20200104
  Receipt Date: 20200104
  Transmission Date: 20200409
  Serious: No
  Sender: FDA-Public Use
  Company Number: None

PATIENT
  Age: 66 Year
  Sex: Female

DRUGS (1)
  1. SUTENT [Suspect]
     Active Substance: SUNITINIB MALATE
     Dosage: ?          OTHER FREQUENCY:OTHER;?? ?
     Route: 048
     Dates: start: 201809, end: 201905

REACTIONS (2)
  - Blood pressure increased [None]
  - Diarrhoea [None]

NARRATIVE: CASE EVENT DATE: 20190525
